FAERS Safety Report 7969632-8 (Version None)
Quarter: 2011Q4

REPORT INFORMATION
  Report Type: 
  Country: None (occurrence: None)
  Receive Date: 20111208
  Receipt Date: 20110930
  Transmission Date: 20120403
  Serious: Yes (Death, Hospitalization, Other)
  Sender: FDA-Public Use
  Company Number: 2010000444

PATIENT
  Age: 53 Year
  Sex: Female
  Weight: 84 kg

DRUGS (16)
  1. ZOFRAN [Concomitant]
  2. LISINOPRIL [Concomitant]
  3. AVASTIN [Suspect]
     Indication: NON-SMALL CELL LUNG CANCER
     Dosage: 15 MG/KG 1 IN 21 DAYS, Q3W, IV NOS, 15 MG/KG Q3W
     Dates: start: 20090116, end: 20110418
  4. AVASTIN [Suspect]
     Indication: NON-SMALL CELL LUNG CANCER
     Dosage: 15 MG/KG 1 IN 21 DAYS, Q3W, IV NOS, 15 MG/KG Q3W
     Dates: start: 20110723
  5. THERA PLUS VITAMINS (MULTIVITAMINS WITH MINERALS) [Concomitant]
  6. MINOCYCLINE HCL [Concomitant]
  7. PHENERGAN HCL [Concomitant]
  8. 4 LIFE TRANSFER FACTOR (TRANSFER FACTOR) [Concomitant]
  9. LOVENOX [Concomitant]
  10. LORTAB [Concomitant]
  11. LEVAQUIN [Concomitant]
  12. ERLOTINIB HYDROCHLORIDE [Suspect]
     Indication: NON-SMALL CELL LUNG CANCER
     Dosage: 25 MG, UID/QD, ORAL, 50 MG, UID/QD, ORAL, 50 MG, /D, ORAL,
     Route: 048
     Dates: start: 20110418, end: 20110425
  13. ERLOTINIB HYDROCHLORIDE [Suspect]
     Indication: NON-SMALL CELL LUNG CANCER
     Dosage: 25 MG, UID/QD, ORAL, 50 MG, UID/QD, ORAL, 50 MG, /D, ORAL,
     Route: 048
     Dates: start: 20080723
  14. ERLOTINIB HYDROCHLORIDE [Suspect]
     Indication: NON-SMALL CELL LUNG CANCER
     Dosage: 25 MG, UID/QD, ORAL, 50 MG, UID/QD, ORAL, 50 MG, /D, ORAL,
     Route: 048
     Dates: start: 20090116, end: 20110923
  15. FENTANYL [Concomitant]
  16. CIPRO [Concomitant]

REACTIONS (24)
  - RASH [None]
  - PERICARDIAL EFFUSION [None]
  - RESPIRATORY DISORDER [None]
  - NEOPLASM PROGRESSION [None]
  - LUNG CANCER METASTATIC [None]
  - INCORRECT DOSE ADMINISTERED [None]
  - FUNGAL SEPSIS [None]
  - PERIPHERAL COLDNESS [None]
  - HYPOTENSION [None]
  - VOMITING [None]
  - CIRCULATORY COLLAPSE [None]
  - GASTROOESOPHAGEAL REFLUX DISEASE [None]
  - LUNG INFECTION [None]
  - BRONCHITIS VIRAL [None]
  - PLATELET COUNT DECREASED [None]
  - TRICUSPID VALVE INCOMPETENCE [None]
  - FALL [None]
  - NAUSEA [None]
  - SYNCOPE [None]
  - ASPIRATION [None]
  - PULMONARY HYPERTENSION [None]
  - RENAL FAILURE ACUTE [None]
  - PANIC ATTACK [None]
  - DEHYDRATION [None]
